FAERS Safety Report 4491540-8 (Version None)
Quarter: 2004Q4

REPORT INFORMATION
  Report Type: 
  Country: None (occurrence: None)
  Receive Date: 20041101
  Receipt Date: 20041013
  Transmission Date: 20050328
  Serious: Yes (Hospitalization)
  Sender: FDA-Public Use
  Company Number: F01200400776

PATIENT
  Age: 78 Year
  Sex: Male

DRUGS (6)
  1. OXALIPLATIN - SOLUTION - 130 MG/M2 [Suspect]
     Indication: COLON CANCER
     Dosage: 130 MG/M2 Q3W, INTRAVENOUS NOS
     Route: 042
     Dates: start: 20040321, end: 20040321
  2. CAPECITABINE - TABLET - 1000 MG/M2 [Suspect]
     Dosage: 1800 MG TWICE A DAY PER ORAL FROM D1 TO D15
     Route: 048
     Dates: start: 20040321, end: 20040408
  3. FAMOTIDINE [Concomitant]
  4. LEXAPRO [Concomitant]
  5. MULTI-VITAMINS [Concomitant]
  6. DILTIAZEM SR (DILTIAZEM HYDROCHLORIDE) [Concomitant]

REACTIONS (7)
  - ANOREXIA [None]
  - ASTHENIA [None]
  - CACHEXIA [None]
  - DEPRESSION [None]
  - GENERAL PHYSICAL HEALTH DETERIORATION [None]
  - NEUROPATHY PERIPHERAL [None]
  - SYNCOPE [None]
